FAERS Safety Report 9725409 (Version 2)
Quarter: 2013Q4

REPORT INFORMATION
  Report Type: Spontaneous
  Country: US (occurrence: US)
  Receive Date: 20131203
  Receipt Date: 20131216
  Transmission Date: 20140711
  Serious: Yes (Death, Hospitalization)
  Sender: FDA-Public Use
  Company Number: US-BAXTER-2013BAX047112

PATIENT
  Sex: Female
  Weight: 106 kg

DRUGS (3)
  1. DIANEAL LOW CALCIUM [Suspect]
     Indication: RENAL FAILURE CHRONIC
     Route: 033
     Dates: start: 2011
  2. DIANEAL LOW CALCIUM [Suspect]
     Dosage: LAST FILL
     Route: 033
     Dates: start: 2011
  3. EXTRANEAL [Suspect]
     Indication: RENAL FAILURE CHRONIC
     Route: 033
     Dates: start: 2011, end: 201311

REACTIONS (5)
  - Death [Fatal]
  - Pneumonia [Unknown]
  - Blood glucose decreased [Not Recovered/Not Resolved]
  - Dehydration [Recovering/Resolving]
  - Ultrafiltration failure [Not Recovered/Not Resolved]
